FAERS Safety Report 8473060-9 (Version None)
Quarter: 2012Q2

REPORT INFORMATION
  Report Type: 
  Country: None (occurrence: None)
  Receive Date: 20120627
  Receipt Date: 20120627
  Transmission Date: 20120825
  Serious: Yes (Other)
  Sender: FDA-Public Use
  Company Number: IT-JNJFOC-20120601702

PATIENT
  Age: 66 Year
  Sex: Male

DRUGS (9)
  1. REMICADE [Suspect]
     Route: 042
     Dates: start: 20050801, end: 20050801
  2. LEUCOVORIN CALCIUM [Concomitant]
     Dosage: TAKEN FROM 16 YEARS
     Route: 065
     Dates: start: 19890101
  3. NEBIVOLOL HCL [Concomitant]
     Dosage: TAKEN FROM 17 YEARS
     Route: 065
  4. REMICADE [Suspect]
     Indication: RHEUMATOID ARTHRITIS
     Route: 042
     Dates: start: 20050412
  5. METHOTREXATE [Concomitant]
     Route: 065
     Dates: start: 19890101, end: 20050801
  6. MEDROL [Concomitant]
     Dosage: TAKEN FROM 16 YEARS
     Route: 065
     Dates: start: 19890101
  7. OMEPRAZOLE [Concomitant]
     Dosage: TAKEN FROM 16 YEARS
     Route: 065
     Dates: start: 19890101
  8. REMICADE [Suspect]
     Route: 042
  9. ASPIRIN [Concomitant]
     Dosage: TAKEN FROM 17 YEARS
     Route: 065

REACTIONS (7)
  - PULSE ABNORMAL [None]
  - PARAESTHESIA [None]
  - HYPOTENSION [None]
  - DRUG HYPERSENSITIVITY [None]
  - MALAISE [None]
  - ADVERSE DRUG REACTION [None]
  - INFUSION RELATED REACTION [None]
